FAERS Safety Report 23787279 (Version 1)
Quarter: 2024Q2

REPORT INFORMATION
  Report Type: Spontaneous
  Country: US (occurrence: US)
  Receive Date: 20240426
  Receipt Date: 20240426
  Transmission Date: 20240716
  Serious: Yes (Death, Hospitalization)
  Sender: FDA-Public Use
  Company Number: US-NORDICGR-055845

PATIENT
  Age: 51 Year
  Sex: Female

DRUGS (3)
  1. METHOTREXATE [Suspect]
     Active Substance: METHOTREXATE
     Indication: Rheumatoid arthritis
     Route: 065
  2. APIXABAN [Concomitant]
     Active Substance: APIXABAN
     Indication: Pulmonary embolism
     Route: 065
  3. PREDNISONE [Concomitant]
     Active Substance: PREDNISONE
     Indication: Rheumatoid arthritis
     Route: 065

REACTIONS (7)
  - Septic shock [Fatal]
  - Inappropriate schedule of product administration [Fatal]
  - Acute kidney injury [Not Recovered/Not Resolved]
  - Accidental overdose [Fatal]
  - Pancytopenia [Fatal]
  - Acute hepatic failure [Not Recovered/Not Resolved]
  - Mouth ulceration [Not Recovered/Not Resolved]
